FAERS Safety Report 6192455-X (Version None)
Quarter: 2009Q2

REPORT INFORMATION
  Report Type: 
  Country: None (occurrence: None)
  Receive Date: 20090518
  Receipt Date: 20070531
  Transmission Date: 20091009
  Serious: Yes (Other)
  Sender: FDA-Public Use
  Company Number: US-ASTRAZENECA-2006UW24809

PATIENT
  Age: 14214 Day
  Sex: Male
  Weight: 154.2 kg

DRUGS (27)
  1. SEROQUEL [Suspect]
     Indication: BIPOLAR DISORDER
     Dosage: 25MG-200MG
     Route: 048
     Dates: start: 20040408
  2. SEROQUEL [Suspect]
     Route: 048
     Dates: start: 20040423
  3. KLONOPIN [Concomitant]
     Route: 065
  4. KEPPRA [Concomitant]
     Route: 065
  5. RENDON [Concomitant]
     Route: 065
  6. AMBIEN [Concomitant]
     Route: 048
  7. PROZAC [Concomitant]
     Dosage: 20MG-40MG
     Route: 048
  8. TOPAMAX [Concomitant]
     Dosage: 25MG-125MG
     Route: 065
  9. VALIUM [Concomitant]
     Dosage: 10MG-500MG
     Route: 065
  10. NEURONTIN [Concomitant]
     Dosage: 600-2000MG
     Route: 065
  11. DEPAKOTE [Concomitant]
     Dosage: 500MG-2500MG
     Route: 048
  12. LITHIUM [Concomitant]
     Dosage: 300-600MG
     Route: 048
  13. REMERON [Concomitant]
     Dosage: 30MG-45MG
     Route: 065
  14. HALDOL [Concomitant]
     Dosage: 25-50MG
     Route: 065
  15. ELAVIL [Concomitant]
     Dosage: 25MG-50MG
     Route: 065
     Dates: end: 20040729
  16. TRILEPTAL [Concomitant]
     Route: 048
     Dates: end: 20040726
  17. DICLOFENAC [Concomitant]
     Route: 048
  18. ACTOS [Concomitant]
     Route: 048
  19. GLUCOPHAGE [Concomitant]
     Route: 065
  20. VYTORIN [Concomitant]
     Dosage: 10MG, 40MG
     Route: 048
  21. FLEXERIL [Concomitant]
     Route: 048
  22. VICODIN [Concomitant]
     Dosage: 5MG,500MG
     Route: 048
  23. DAYPRO [Concomitant]
     Route: 065
  24. RELAFEN [Concomitant]
     Route: 065
  25. CLONIDINE [Concomitant]
     Dosage: 0.1MG-0.2MG
     Route: 048
  26. CYMBALLTA [Concomitant]
     Route: 065
  27. IBUPROFEN [Concomitant]
     Route: 048

REACTIONS (8)
  - AVULSION FRACTURE [None]
  - BACK PAIN [None]
  - CONTUSION [None]
  - HYPERGLYCAEMIA [None]
  - INTERVERTEBRAL DISC DEGENERATION [None]
  - JOINT SPRAIN [None]
  - PERSONALITY DISORDER [None]
  - TYPE 2 DIABETES MELLITUS [None]
